FAERS Safety Report 6529547-9 (Version None)
Quarter: 2010Q1

REPORT INFORMATION
  Report Type: 
  Country: None (occurrence: None)
  Receive Date: 20100104
  Receipt Date: 20091223
  Transmission Date: 20100710
  Serious: Yes (Hospitalization)
  Sender: FDA-Public Use
  Company Number: WAES 0912USA01177

PATIENT
  Age: 85 Year
  Sex: Male

DRUGS (7)
  1. ZOCOR [Suspect]
     Indication: ACUTE CORONARY SYNDROME
     Dosage: 40 MG/DAILY PO
     Route: 048
     Dates: start: 20071119, end: 20091022
  2. PLACEBO (UNSPECIFIED) [Suspect]
     Indication: ACUTE CORONARY SYNDROME
     Dosage: PO
     Route: 048
     Dates: start: 20071119, end: 20091022
  3. ASPIRIN [Concomitant]
  4. BISOPROLOL [Concomitant]
  5. DOXAZOSIN MESYLATE [Concomitant]
  6. GLICLAZIDE [Concomitant]
  7. RAMIPRIL [Concomitant]

REACTIONS (2)
  - CHOLESTASIS [None]
  - DIVERTICULUM INTESTINAL [None]
